FAERS Safety Report 22000350 (Version 1)
Quarter: 2023Q1

REPORT INFORMATION
  Report Type: Report from Study
  Country: FR (occurrence: FR)
  Receive Date: 20230216
  Receipt Date: 20230216
  Transmission Date: 20230418
  Serious: Yes (Hospitalization, Other)
  Sender: FDA-Public Use
  Company Number: FR-PFIZER INC-PV202300026275

PATIENT
  Age: 73 Year
  Sex: Female
  Weight: 73 kg

DRUGS (10)
  1. PALBOCICLIB [Suspect]
     Active Substance: PALBOCICLIB
     Dosage: 75 MG, 21 DAYS ON 7 DAYS OFF
     Dates: start: 20200629, end: 20200812
  2. PALBOCICLIB [Suspect]
     Active Substance: PALBOCICLIB
     Dosage: 75 MG, 21 DAYS ON 7 DAYS OFF
     Dates: start: 20200824, end: 20201127
  3. PALBOCICLIB [Suspect]
     Active Substance: PALBOCICLIB
     Dosage: 75 MG, 21 DAYS ON 7 DAYS OFF
     Dates: start: 20201207, end: 20210201
  4. PALBOCICLIB [Suspect]
     Active Substance: PALBOCICLIB
     Dosage: 75 MG, 21 DAYS ON 7 DAYS OFF
     Dates: start: 20210208, end: 20210315
  5. PALBOCICLIB [Suspect]
     Active Substance: PALBOCICLIB
     Dosage: 2 WEEKS 1 TABLET 75MG, 1 WEEK WITHOUT TREATMENT
     Dates: start: 20210329, end: 20210419
  6. PALBOCICLIB [Suspect]
     Active Substance: PALBOCICLIB
     Dosage: 2 WEEKS, 75MG DAY, 2 WEEKS INTERRUPTION
     Dates: start: 20210419, end: 20210524
  7. PALBOCICLIB [Suspect]
     Active Substance: PALBOCICLIB
     Dosage: 2 WEEKS IBRANCE 75MG DAY, 2 WEEKS INTERRUPTION
     Dates: start: 20210524, end: 20210622
  8. PALBOCICLIB [Suspect]
     Active Substance: PALBOCICLIB
     Dosage: 2 WEEKS OF 75MG TREATMENT 2 WEEKS OUT OF 5
     Dates: start: 20210715
  9. PALBOCICLIB [Suspect]
     Active Substance: PALBOCICLIB
     Dosage: 75MG TABLET EVERY 2 DAYS FOR 3 OUT OF 5 WEEKS
     Dates: start: 20220120
  10. LETROZOLE [Concomitant]
     Active Substance: LETROZOLE
     Indication: Breast cancer
     Dosage: UNK
     Route: 048
     Dates: start: 20200629

REACTIONS (6)
  - Pancytopenia [Recovered/Resolved]
  - Asthenia [Unknown]
  - Erysipelas [Recovered/Resolved]
  - Dyspnoea [Recovered/Resolved]
  - Thrombosis [Recovered/Resolved]
  - Oedema [Recovered/Resolved]

NARRATIVE: CASE EVENT DATE: 20200704
